FAERS Safety Report 19820887 (Version 1)
Quarter: 2021Q3

REPORT INFORMATION
  Report Type: Other
  Country: US (occurrence: US)
  Receive Date: 20210913
  Receipt Date: 20210913
  Transmission Date: 20211014
  Serious: Yes (Other)
  Sender: FDA-Public Use
  Company Number: US-ROCHE-2907110

PATIENT

DRUGS (3)
  1. DABRAFENIB [Suspect]
     Active Substance: DABRAFENIB
     Indication: GLIOMA
     Route: 065
  2. TRAMETINIB [Suspect]
     Active Substance: TRAMETINIB
     Indication: GLIOMA
     Route: 065
  3. VEMURAFENIB. [Suspect]
     Active Substance: VEMURAFENIB
     Indication: GLIOMA
     Route: 065

REACTIONS (6)
  - Photosensitivity reaction [Unknown]
  - Skin toxicity [Unknown]
  - Off label use [Unknown]
  - Weight decreased [Unknown]
  - Neutropenia [Unknown]
  - Fatigue [Unknown]
